FAERS Safety Report 9115777 (Version 1)
Quarter: 2013Q1

REPORT INFORMATION
  Report Type: Spontaneous
  Country: TW (occurrence: TW)
  Receive Date: 20130224
  Receipt Date: 20130224
  Transmission Date: 20140127
  Serious: Yes (Other)
  Sender: FDA-Public Use
  Company Number: TW-TEVA-387585ISR

PATIENT
  Age: 6 Decade
  Sex: Male

DRUGS (6)
  1. CISPLATIN [Suspect]
     Indication: LUNG ADENOCARCINOMA
     Route: 065
  2. ERLOTINIB [Suspect]
     Indication: LUNG ADENOCARCINOMA
     Dosage: 150 MILLIGRAM DAILY;
     Route: 048
  3. PEMETREXED [Suspect]
     Indication: LUNG ADENOCARCINOMA
     Route: 065
  4. DESOXIMETASONE [Concomitant]
     Indication: RASH FOLLICULAR
     Route: 061
  5. TETRACYCLINE [Concomitant]
     Indication: RASH FOLLICULAR
     Route: 065
  6. SULFUR [Concomitant]
     Indication: RASH FOLLICULAR
     Route: 065

REACTIONS (4)
  - Leukocytoclastic vasculitis [Recovered/Resolved]
  - Rash follicular [Recovering/Resolving]
  - Paronychia [Recovered/Resolved]
  - Eczema asteatotic [Recovered/Resolved]
